FAERS Safety Report 26027335 (Version 2)
Quarter: 2025Q4

REPORT INFORMATION
  Report Type: Spontaneous
  Country: AU (occurrence: AU)
  Receive Date: 20251111
  Receipt Date: 20251222
  Transmission Date: 20260118
  Serious: Yes (Death, Other)
  Sender: NOVARTIS
  Company Number: AU-002147023-NVSC2025AU172433

PATIENT

DRUGS (1)
  1. DEFERASIROX [Suspect]
     Active Substance: DEFERASIROX
     Indication: Product used for unknown indication
     Dosage: UNK
     Route: 065

REACTIONS (1)
  - Drug-induced liver injury [Fatal]
